FAERS Safety Report 6631837-6 (Version None)
Quarter: 2010Q1

REPORT INFORMATION
  Report Type: 
  Country: None (occurrence: None)
  Receive Date: 20100312
  Receipt Date: 20100302
  Transmission Date: 20100710
  Serious: Yes (Other)
  Sender: FDA-Public Use
  Company Number: US-ROCHE-595750

PATIENT
  Sex: Female

DRUGS (5)
  1. PEG-INTERFERON A-2A (RO 25-8310) [Suspect]
     Indication: HEPATITIS C
     Dosage: FORM: PRE-FILLED SYRINGE
     Route: 065
     Dates: start: 20080811, end: 20090706
  2. RIBAVIRIN [Suspect]
     Indication: HEPATITIS C
     Dosage: DIVIDED DOSES
     Route: 065
     Dates: start: 20080811, end: 20090706
  3. NEUPOGEN [Suspect]
     Route: 058
     Dates: start: 20081001
  4. RIBAVIRIN [Suspect]
     Indication: HEPATITIS C
     Dosage: DRUG REPORTED AS: RIBAVIRIN ZA-12
     Route: 065
  5. PROCRIT [Suspect]
     Dosage: DOSE: 40000IU/ML
     Route: 058

REACTIONS (33)
  - AMNESIA [None]
  - BACK PAIN [None]
  - BACTERIAL TEST POSITIVE [None]
  - BLOOD GLUCOSE INCREASED [None]
  - CHILLS [None]
  - CONFUSIONAL STATE [None]
  - CONTUSION [None]
  - DECREASED APPETITE [None]
  - DIZZINESS [None]
  - DRUG INEFFECTIVE [None]
  - DYSPNOEA [None]
  - FATIGUE [None]
  - FEELING ABNORMAL [None]
  - FLANK PAIN [None]
  - HAEMATURIA [None]
  - HEMICEPHALALGIA [None]
  - INCREASED APPETITE [None]
  - INSOMNIA [None]
  - MENTAL IMPAIRMENT [None]
  - NAUSEA [None]
  - NEUTROPENIA [None]
  - OROPHARYNGEAL PAIN [None]
  - PAIN IN EXTREMITY [None]
  - PALPITATIONS [None]
  - PLATELET COUNT DECREASED [None]
  - PRESYNCOPE [None]
  - PROTEINURIA [None]
  - RED BLOOD CELL COUNT DECREASED [None]
  - VAGINAL DISCHARGE [None]
  - VIRAL LOAD INCREASED [None]
  - VISUAL IMPAIRMENT [None]
  - WEIGHT DECREASED [None]
  - WHITE BLOOD CELL COUNT DECREASED [None]
